FAERS Safety Report 23783376 (Version 1)
Quarter: 2024Q2

REPORT INFORMATION
  Report Type: Spontaneous
  Country: US (occurrence: US)
  Receive Date: 20240425
  Receipt Date: 20240425
  Transmission Date: 20240716
  Serious: Yes (Hospitalization)
  Sender: FDA-Public Use
  Company Number: US-MYLANLABS-2024M1036848

PATIENT
  Age: 57 Year
  Sex: Female

DRUGS (1)
  1. REGADENOSON [Suspect]
     Active Substance: REGADENOSON
     Indication: Scan myocardial perfusion
     Dosage: 0.4 MILLIGRAM
     Route: 065

REACTIONS (2)
  - Bundle branch block left [Recovered/Resolved]
  - Cardiac perfusion defect [Recovered/Resolved]
